FAERS Safety Report 9378851 (Version 1)
Quarter: 2013Q3

REPORT INFORMATION
  Report Type: Spontaneous
  Country: US (occurrence: US)
  Receive Date: 20130702
  Receipt Date: 20130702
  Transmission Date: 20140515
  Serious: No
  Sender: FDA-Public Use
  Company Number: US-PFIZER INC-2013193119

PATIENT
  Age: 55 Year
  Sex: Female

DRUGS (4)
  1. SUTENT [Suspect]
     Dosage: 50 MG, 1X/DAY, 4 WEEKS ON/2 WEEKS OFF
     Route: 048
     Dates: start: 20090319
  2. SUTENT [Suspect]
     Dosage: 37.5 MG, 1X/DAY, 4 WEEKS ON/2 WEEKS OFF
     Route: 048
     Dates: start: 20090514
  3. SUTENT [Suspect]
     Dosage: 25 MG, 1X/DAY, 4 WEEKS ON/2 WEEKS OFF
     Route: 048
     Dates: start: 20090827
  4. SUTENT [Suspect]
     Dosage: 12.5 MG, 1X/DAY, 4 WEEKS ON/2 WEEKS OFF
     Route: 048
     Dates: start: 20101108

REACTIONS (1)
  - Rash [Unknown]
